FAERS Safety Report 7302006-1 (Version None)
Quarter: 2011Q1

REPORT INFORMATION
  Report Type: 
  Country: None (occurrence: None)
  Receive Date: 20110208
  Receipt Date: 20110127
  Transmission Date: 20110831
  Serious: Yes (Hospitalization)
  Sender: FDA-Public Use
  Company Number: TPA2010A06063

PATIENT
  Age: 40 Year
  Sex: Male
  Weight: 99.3377 kg

DRUGS (5)
  1. METOPROLOL SUCCINATE [Concomitant]
  2. ASPIRIN [Concomitant]
  3. ACTOS [Suspect]
     Indication: TYPE 2 DIABETES MELLITUS
     Dosage: 30 MG, 1 IN 1 D, PER ORAL
     Route: 048
  4. MEFORMIN (METFORMIN) [Concomitant]
  5. PRILOSEC (OMEPRAZOLE) [Concomitant]

REACTIONS (1)
  - CHEST PAIN [None]
